FAERS Safety Report 6294175-X (Version None)
Quarter: 2009Q3

REPORT INFORMATION
  Report Type: 
  Country: None (occurrence: None)
  Receive Date: 20090803
  Receipt Date: 20090129
  Transmission Date: 20100115
  Serious: No
  Sender: FDA-Public Use
  Company Number: A0765873A

PATIENT
  Age: 72 Year
  Sex: Female

DRUGS (2)
  1. NICORETTE [Suspect]
  2. NICODERM CQ [Suspect]

REACTIONS (3)
  - ABDOMINAL DISCOMFORT [None]
  - HYPERSENSITIVITY [None]
  - URTICARIA [None]
